FAERS Safety Report 25925204 (Version 1)
Quarter: 2025Q4

REPORT INFORMATION
  Report Type: Spontaneous
  Country: EU (occurrence: EU)
  Receive Date: 20251015
  Receipt Date: 20251015
  Transmission Date: 20260117
  Serious: Yes (Other)
  Sender: PFIZER
  Company Number: None

PATIENT
  Age: 56 Year
  Sex: Male
  Weight: 64.6 kg

DRUGS (12)
  1. BRAFTOVI [Suspect]
     Active Substance: ENCORAFENIB
     Indication: Metastatic malignant melanoma
     Dosage: 1 DF, 1X/DAY,75MG 6 0 0
     Route: 048
     Dates: start: 20200707
  2. MEKTOVI [Suspect]
     Active Substance: BINIMETINIB
     Indication: Metastatic malignant melanoma
     Dosage: 15 MG, 2X/DAY, 1 DF, EVERY 12 HOURS, 15MG 3 0 3
     Route: 048
     Dates: start: 20200707
  3. NIVOLUMAB [Suspect]
     Active Substance: NIVOLUMAB
     Indication: Metastatic malignant melanoma
     Dosage: UNK
     Route: 065
     Dates: start: 2019
  4. LYRICA [Concomitant]
     Active Substance: PREGABALIN
     Dosage: 1 DF, 1X/DAY, 50 MG 1 0 0
     Route: 048
  5. FOLIC ACID [Concomitant]
     Active Substance: FOLIC ACID
     Indication: Anaemia
     Dosage: 1 DF, 1X/DAY, 5 MG 1 0 0
     Route: 048
  6. OXAZEPAM [Concomitant]
     Active Substance: OXAZEPAM
     Dosage: 1 DF, 1X/DAY,10 MG 0 0 1
     Route: 048
  7. TRAMADOL HYDROCHLORIDE [Concomitant]
     Active Substance: TRAMADOL HYDROCHLORIDE
     Dosage: 1 DF, DAILY,100MG 1 0 1
     Route: 048
  8. TEGRETOL [Concomitant]
     Active Substance: CARBAMAZEPINE
     Dosage: 1 DF, DAILY, 300MG 1 0 1
     Route: 048
  9. AMITRIPTYLINE HYDROCHLORIDE [Concomitant]
     Active Substance: AMITRIPTYLINE HYDROCHLORIDE
     Dosage: 20 DROP, 1X/DAY, IN THE EVENING
     Route: 048
  10. DOLIPRANE [Concomitant]
     Active Substance: ACETAMINOPHEN
     Indication: Pain
     Dosage: 1 DF, DAILY
     Route: 048
  11. DULOXETINE HYDROCHLORIDE [Concomitant]
     Active Substance: DULOXETINE HYDROCHLORIDE
     Dosage: 1 DF, DAILY, 30 MG 1 0 1
     Route: 048
  12. NEBIVOLOL [Concomitant]
     Active Substance: NEBIVOLOL
     Dosage: 1 DF, DAILY, 30 MG 1 0 1
     Route: 048

REACTIONS (1)
  - Large intestinal ulcer [Not Recovered/Not Resolved]

NARRATIVE: CASE EVENT DATE: 20241003
